FAERS Safety Report 13707643 (Version 1)
Quarter: 2017Q2

REPORT INFORMATION
  Report Type: Spontaneous
  Country: FR (occurrence: FR)
  Receive Date: 20170630
  Receipt Date: 20170630
  Transmission Date: 20170830
  Serious: Yes (Other)
  Sender: FDA-Public Use
  Company Number: FR-B. BRAUN MEDICAL INC.-2022798

PATIENT
  Age: 68 Year
  Sex: Male

DRUGS (4)
  1. LACTATED RINGERS [Suspect]
     Active Substance: CALCIUM CHLORIDE\POTASSIUM CHLORIDE\SODIUM CHLORIDE\SODIUM LACTATE
     Indication: ENDOSCOPY
  2. ATARAX [Suspect]
     Active Substance: HYDROXYZINE HYDROCHLORIDE
  3. PROPOFOL. [Suspect]
     Active Substance: PROPOFOL
  4. CIMETIDINE [Suspect]
     Active Substance: CIMETIDINE

REACTIONS (2)
  - Nail disorder [Not Recovered/Not Resolved]
  - Alopecia universalis [Not Recovered/Not Resolved]
